FAERS Safety Report 12118960 (Version 2)
Quarter: 2016Q2

REPORT INFORMATION
  Report Type: Report from Study
  Country: US (occurrence: US)
  Receive Date: 20160226
  Receipt Date: 20160422
  Transmission Date: 20160815
  Serious: Yes (Hospitalization, Other)
  Sender: FDA-Public Use
  Company Number: US-TEVA-637386USA

PATIENT
  Age: 37 Year
  Sex: Female

DRUGS (1)
  1. COPAXONE [Suspect]
     Active Substance: GLATIRAMER ACETATE
     Indication: MULTIPLE SCLEROSIS
     Route: 058
     Dates: start: 20150827, end: 20160215

REACTIONS (8)
  - Swelling face [Unknown]
  - Skin discolouration [Unknown]
  - Dyspnoea [Unknown]
  - Loss of consciousness [Recovered/Resolved]
  - Tremor [Unknown]
  - Exophthalmos [Unknown]
  - Urinary tract infection [Unknown]
  - Heart rate increased [Unknown]

NARRATIVE: CASE EVENT DATE: 20160215
